FAERS Safety Report 12299930 (Version 4)
Quarter: 2016Q3

REPORT INFORMATION
  Report Type: Report from Study
  Country: JP (occurrence: JP)
  Receive Date: 20160425
  Receipt Date: 20160819
  Transmission Date: 20161109
  Serious: Yes (Death, Disabling, Other)
  Sender: FDA-Public Use
  Company Number: JP-OTSUKA-2016_008874

PATIENT
  Age: 48 Year
  Sex: Male
  Weight: 48 kg

DRUGS (20)
  1. ARIPIPRAZOLE (DUAL CHAMBER) [Suspect]
     Active Substance: ARIPIPRAZOLE
     Indication: SCHIZOPHRENIA
     Dosage: 400 MG, QM
     Route: 030
     Dates: start: 20160316
  2. HALOPERIDOL. [Suspect]
     Active Substance: HALOPERIDOL
     Indication: SCHIZOPHRENIA
     Dosage: 2 MG, QD
     Route: 048
     Dates: start: 20160412, end: 20160416
  3. ABILIFY [Concomitant]
     Active Substance: ARIPIPRAZOLE
     Indication: SCHIZOPHRENIA
     Dosage: 24 MG, QD
     Route: 048
     Dates: end: 20160330
  4. RISPERIDONE. [Suspect]
     Active Substance: RISPERIDONE
     Indication: SCHIZOPHRENIA
     Dosage: 2 ML, QD
     Route: 048
     Dates: start: 2016, end: 20160419
  5. ABILIFY [Concomitant]
     Active Substance: ARIPIPRAZOLE
     Indication: PRODUCT USED FOR UNKNOWN INDICATION
     Dosage: UNK
     Route: 065
     Dates: start: 20160108
  6. MEILAX [Concomitant]
     Active Substance: ETHYL LOFLAZEPATE
     Indication: SCHIZOPHRENIA
     Dosage: 2 MG, QD
     Route: 048
     Dates: end: 20160419
  7. DORAL [Concomitant]
     Active Substance: QUAZEPAM
     Indication: SCHIZOPHRENIA
     Dosage: 15 MG, QD
     Route: 048
     Dates: end: 20160419
  8. FLUNITRAZEPAM [Concomitant]
     Active Substance: FLUNITRAZEPAM
     Indication: SCHIZOPHRENIA
     Dosage: 2 MG, QD
     Route: 048
     Dates: end: 20160419
  9. ISOMYTAL [Concomitant]
     Active Substance: AMOBARBITAL SODIUM
     Indication: SCHIZOPHRENIA
     Dosage: 0.25 G, QD
     Route: 048
     Dates: end: 20160419
  10. PANTOSIN [Concomitant]
     Active Substance: PANTETHINE
     Indication: PRODUCT USED FOR UNKNOWN INDICATION
     Dosage: 1200 MG, QD
     Route: 048
     Dates: end: 20160419
  11. SENNOSIDE A+B [Concomitant]
     Active Substance: SENNOSIDES A AND B
     Indication: PRODUCT USED FOR UNKNOWN INDICATION
     Dosage: 24 MG, QD
     Route: 048
     Dates: end: 20160419
  12. HALOPERIDOL. [Suspect]
     Active Substance: HALOPERIDOL
     Dosage: 3 MG, QD
     Route: 048
     Dates: start: 20160417, end: 20160419
  13. CERCINE [Concomitant]
     Active Substance: DIAZEPAM
     Indication: SCHIZOPHRENIA
     Dosage: 0.25 G, QD
     Route: 048
     Dates: end: 20160419
  14. BENZALIN [Concomitant]
     Active Substance: NITRAZEPAM
     Indication: SCHIZOPHRENIA
     Dosage: 0.25 G, QD
     Route: 048
     Dates: end: 20160419
  15. MAGNESIUM OXIDE. [Concomitant]
     Active Substance: MAGNESIUM OXIDE
     Indication: PRODUCT USED FOR UNKNOWN INDICATION
     Dosage: 1000 MG, QD
     Route: 048
     Dates: end: 20160419
  16. XYZAL [Concomitant]
     Active Substance: LEVOCETIRIZINE DIHYDROCHLORIDE
     Indication: PROPHYLAXIS
     Dosage: 5 MG, QD
     Route: 048
     Dates: end: 20160419
  17. SELENICA-R [Concomitant]
     Active Substance: VALPROATE SODIUM
     Indication: SCHIZOPHRENIA
     Dosage: 1.5 G, QD
     Route: 048
     Dates: end: 20160419
  18. CHALDOL [Concomitant]
     Indication: PRODUCT USED FOR UNKNOWN INDICATION
     Dosage: 2 MG, QD
     Route: 048
     Dates: end: 20160419
  19. ARIPIPRAZOLE (DUAL CHAMBER) [Suspect]
     Active Substance: ARIPIPRAZOLE
     Dosage: 400 MG, QM, BUTTOCKS
     Route: 030
     Dates: start: 20160413
  20. KAYEXALATE [Concomitant]
     Active Substance: SODIUM POLYSTYRENE SULFONATE
     Indication: PRODUCT USED FOR UNKNOWN INDICATION
     Dosage: 5 MG, QD
     Route: 048
     Dates: end: 20160419

REACTIONS (11)
  - Immunodeficiency [Fatal]
  - Psychiatric symptom [Unknown]
  - Face oedema [Unknown]
  - Aggression [Unknown]
  - Hypothermia [Not Recovered/Not Resolved]
  - Escherichia infection [Recovering/Resolving]
  - Dysbacteriosis [Unknown]
  - Respiratory failure [Not Recovered/Not Resolved]
  - Intestinal obstruction [Fatal]
  - Stupor [Not Recovered/Not Resolved]
  - Abnormal behaviour [Unknown]

NARRATIVE: CASE EVENT DATE: 20160326
